FAERS Safety Report 8963645 (Version 1)
Quarter: 2012Q4

REPORT INFORMATION
  Report Type: 
  Country: US (occurrence: US)
  Receive Date: 20121214
  Receipt Date: 20121214
  Transmission Date: 20130627
  Serious: Yes (Hospitalization, Other)
  Sender: FDA-Public Use
  Company Number: US-AMGEN-USASP2012068605

PATIENT
  Age: 65 Year
  Sex: Female

DRUGS (1)
  1. ENBREL [Suspect]
     Indication: RHEUMATOID ARTHRITIS
     Dosage: 50 mg, qwk
     Dates: start: 2010

REACTIONS (7)
  - Road traffic accident [Recovered/Resolved]
  - Hip fracture [Recovered/Resolved]
  - Upper limb fracture [Recovered/Resolved]
  - Laceration [Recovered/Resolved]
  - Pyrexia [Recovered/Resolved]
  - Abasia [Not Recovered/Not Resolved]
  - Infection [Recovered/Resolved]
